FAERS Safety Report 10308286 (Version 1)
Quarter: 2014Q3

REPORT INFORMATION
  Report Type: Spontaneous
  Country: TR (occurrence: TR)
  Receive Date: 20140716
  Receipt Date: 20140716
  Transmission Date: 20150326
  Serious: Yes (Other)
  Sender: FDA-Public Use
  Company Number: TR-ACTAVIS-2014-15121

PATIENT
  Age: 29 Year
  Sex: Female
  Weight: 71 kg

DRUGS (2)
  1. METOCLOPRAMIDE. [Concomitant]
     Active Substance: METOCLOPRAMIDE
     Indication: PREMEDICATION
     Dosage: 1 X 20 MG
     Route: 042
     Dates: start: 20140524, end: 20140526
  2. FLUDALYM [Suspect]
     Active Substance: FLUDARABINE PHOSPHATE
     Indication: CHRONIC LYMPHOCYTIC LEUKAEMIA
     Dosage: 50 MG, UNK
     Route: 042
     Dates: start: 20140524, end: 20140527

REACTIONS (2)
  - Breast enlargement [Unknown]
  - Breast swelling [Unknown]

NARRATIVE: CASE EVENT DATE: 20140527
